FAERS Safety Report 26214162 (Version 1)
Quarter: 2025Q4

REPORT INFORMATION
  Report Type: Spontaneous
  Country: EU (occurrence: EU)
  Receive Date: 20251230
  Receipt Date: 20251230
  Transmission Date: 20260117
  Serious: Yes (Other)
  Sender: SHIONOGI
  Company Number: EU-AEMPS-1802234

PATIENT
  Sex: Female

DRUGS (2)
  1. CEFIDEROCOL SULFATE TOSYLATE [Suspect]
     Active Substance: CEFIDEROCOL SULFATE TOSYLATE
     Indication: Arthritis infective
     Dates: start: 20250520, end: 20250616
  2. CEFIDEROCOL SULFATE TOSYLATE [Suspect]
     Active Substance: CEFIDEROCOL SULFATE TOSYLATE
     Indication: Osteomyelitis

REACTIONS (1)
  - Hepatotoxicity [Recovered/Resolved]

NARRATIVE: CASE EVENT DATE: 20250616
